FAERS Safety Report 13344458 (Version 2)
Quarter: 2019Q4

REPORT INFORMATION
  Report Type: Spontaneous
  Country: CA (occurrence: CA)
  Receive Date: 20170317
  Receipt Date: 20191018
  Transmission Date: 20200122
  Serious: Yes (Other)
  Sender: FDA-Public Use
  Company Number: CA-ROCHE-1904129

PATIENT
  Sex: Female

DRUGS (35)
  1. METHOTREXATE SODIUM. [Suspect]
     Active Substance: METHOTREXATE SODIUM
     Indication: PRODUCT USED FOR UNKNOWN INDICATION
     Route: 065
  2. SODIUM AUROTHIOMALATE [Suspect]
     Active Substance: GOLD SODIUM THIOMALATE
     Indication: PRODUCT USED FOR UNKNOWN INDICATION
     Route: 030
  3. DESOXIMETASONE. [Concomitant]
     Active Substance: DESOXIMETASONE
  4. BENADRYL [Concomitant]
     Active Substance: DIPHENHYDRAMINE HYDROCHLORIDE
  5. CODEINE [Concomitant]
     Active Substance: CODEINE
  6. KINERET [Concomitant]
     Active Substance: ANAKINRA
     Route: 065
  7. LASIX [Concomitant]
     Active Substance: FUROSEMIDE
  8. URISPAS [Concomitant]
     Active Substance: FLAVOXATE HYDROCHLORIDE
     Route: 065
  9. VAGIFEM [Concomitant]
     Active Substance: ESTRADIOL
  10. ACTEMRA [Suspect]
     Active Substance: TOCILIZUMAB
     Indication: PRODUCT USED FOR UNKNOWN INDICATION
     Route: 065
  11. ENBREL [Suspect]
     Active Substance: ETANERCEPT
     Indication: RHEUMATOID ARTHRITIS
     Route: 065
  12. XELJANZ [Suspect]
     Active Substance: TOFACITINIB CITRATE
     Indication: PRODUCT USED FOR UNKNOWN INDICATION
     Route: 065
  13. SYNTHROID [Concomitant]
     Active Substance: LEVOTHYROXINE SODIUM
  14. ARAVA [Suspect]
     Active Substance: LEFLUNOMIDE
     Indication: RHEUMATOID ARTHRITIS
     Route: 065
  15. DARIFENACIN HYDROBROMIDE. [Concomitant]
     Active Substance: DARIFENACIN HYDROBROMIDE
  16. DILAUDID [Concomitant]
     Active Substance: HYDROMORPHONE HYDROCHLORIDE
  17. LOPERAMIDE [Concomitant]
     Active Substance: LOPERAMIDE
  18. OMNARIS [Concomitant]
     Active Substance: CICLESONIDE
     Route: 065
  19. PANTOLOC [PANTOPRAZOLE] [Concomitant]
     Active Substance: PANTOPRAZOLE SODIUM
     Route: 065
  20. HYDROXYCHLOROQUINE [Suspect]
     Active Substance: HYDROXYCHLOROQUINE
     Indication: PRODUCT USED FOR UNKNOWN INDICATION
     Route: 065
  21. HYDROMORPHONE [Concomitant]
     Active Substance: HYDROMORPHONE
  22. RITUXAN [Concomitant]
     Active Substance: RITUXIMAB
     Route: 042
  23. HUMIRA [Suspect]
     Active Substance: ADALIMUMAB
     Indication: PRODUCT USED FOR UNKNOWN INDICATION
     Route: 065
  24. ORENCIA [Suspect]
     Active Substance: ABATACEPT
     Indication: PRODUCT USED FOR UNKNOWN INDICATION
     Route: 065
  25. ATIVAN [Concomitant]
     Active Substance: LORAZEPAM
  26. DEXAMETHASONE. [Concomitant]
     Active Substance: DEXAMETHASONE
  27. KENALOG [Concomitant]
     Active Substance: TRIAMCINOLONE ACETONIDE
     Route: 065
  28. OXYNEO [Concomitant]
     Active Substance: OXYCODONE
     Route: 065
  29. RESTASIS [Concomitant]
     Active Substance: CYCLOSPORINE
     Route: 065
  30. REMICADE [Suspect]
     Active Substance: INFLIXIMAB
     Indication: PRODUCT USED FOR UNKNOWN INDICATION
     Route: 065
  31. ACETAMINOPHEN. [Concomitant]
     Active Substance: ACETAMINOPHEN
  32. MORPHINE SULFATE. [Concomitant]
     Active Substance: MORPHINE SULFATE
  33. NORFLEX [Concomitant]
     Active Substance: ORPHENADRINE CITRATE
  34. TRIMETHOPRIM. [Concomitant]
     Active Substance: TRIMETHOPRIM
  35. KADIAN [Concomitant]
     Active Substance: MORPHINE SULFATE
     Route: 065

REACTIONS (15)
  - Synovitis [Unknown]
  - Anaemia [Unknown]
  - Pneumonia viral [Not Recovered/Not Resolved]
  - Leukopenia [Unknown]
  - Drug ineffective [Unknown]
  - Liver function test abnormal [Unknown]
  - Soft tissue disorder [Unknown]
  - Oral pain [Not Recovered/Not Resolved]
  - Fibromyalgia [Unknown]
  - Herpes zoster [Unknown]
  - Infection [Unknown]
  - Peripheral swelling [Unknown]
  - Joint swelling [Unknown]
  - Arthritis [Unknown]
  - Blood cholesterol increased [Unknown]
